FAERS Safety Report 15846858 (Version 1)
Quarter: 2019Q1

REPORT INFORMATION
  Report Type: Spontaneous
  Country: GB (occurrence: GB)
  Receive Date: 20190121
  Receipt Date: 20190121
  Transmission Date: 20190417
  Serious: Yes (Congenital Anomaly)
  Sender: FDA-Public Use
  Company Number: GB-TEVA-2019-GB-1001089

PATIENT
  Age: 28 Year
  Sex: Female
  Weight: 48 kg

DRUGS (5)
  1. PROPRANOLOL [Suspect]
     Active Substance: PROPRANOLOL HYDROCHLORIDE
     Indication: ANXIETY
     Dosage: 120 MILLIGRAM DAILY; AS NECESSARY
     Route: 048
     Dates: start: 20150416
  2. FLUOXETINE [Suspect]
     Active Substance: FLUOXETINE HYDROCHLORIDE
     Dosage: 60 MILLIGRAM DAILY; 60MG DAILY, REDUCED TO 20MG DAILY WHEN PREGNANCY CONFIRMED
     Route: 048
     Dates: start: 20150416
  3. PROPRANOLOL [Suspect]
     Active Substance: PROPRANOLOL HYDROCHLORIDE
     Dosage: 40 MILLIGRAM DAILY; REDUCED TO 40MG DAILY WHEN PREGNANCY CONFIRMED
     Route: 048
  4. FLUOXETINE [Suspect]
     Active Substance: FLUOXETINE HYDROCHLORIDE
     Indication: ANXIETY
     Dosage: 20 MILLIGRAM DAILY; REDUCED TO 20MG DAILY WHEN PREGNANCY CONFIRMED
     Route: 048
  5. FERROUS FUMARATE [Concomitant]
     Active Substance: FERROUS FUMARATE
     Route: 065
     Dates: start: 20180816

REACTIONS (3)
  - Fallot^s tetralogy [Not Recovered/Not Resolved]
  - Maternal exposure during pregnancy [Unknown]
  - Right aortic arch [Not Recovered/Not Resolved]

NARRATIVE: CASE EVENT DATE: 20181105
